FAERS Safety Report 6877397-6 (Version None)
Quarter: 2010Q3

REPORT INFORMATION
  Report Type: 
  Country: None (occurrence: None)
  Receive Date: 20100719
  Receipt Date: 20100702
  Transmission Date: 20110219
  Serious: Yes (Life-Threatening, Hospitalization, Other)
  Sender: FDA-Public Use
  Company Number: 20100614CINRY1517

PATIENT
  Age: 37 Year
  Sex: Female
  Weight: 79 kg

DRUGS (13)
  1. CINRYZE [Suspect]
     Indication: HEREDITARY ANGIOEDEMA
     Dosage: SEE IMAGE
     Route: 042
     Dates: start: 20080101, end: 20100301
  2. CINRYZE [Suspect]
     Indication: PROPHYLAXIS
     Dosage: SEE IMAGE
     Route: 042
     Dates: start: 20080101, end: 20100301
  3. CINRYZE [Suspect]
     Indication: HEREDITARY ANGIOEDEMA
     Dosage: SEE IMAGE
     Route: 042
     Dates: start: 20100401
  4. CINRYZE [Suspect]
     Indication: PROPHYLAXIS
     Dosage: SEE IMAGE
     Route: 042
     Dates: start: 20100401
  5. CINRYZE [Suspect]
     Indication: HEREDITARY ANGIOEDEMA
     Dosage: SEE IMAGE
     Route: 042
     Dates: start: 20100601
  6. CINRYZE [Suspect]
     Indication: PROPHYLAXIS
     Dosage: SEE IMAGE
     Route: 042
     Dates: start: 20100601
  7. LOVENOX [Concomitant]
  8. COUMADIN [Concomitant]
  9. LORATAB (LORATADINE) [Concomitant]
  10. ZOCOR [Concomitant]
  11. HYDROCHLOROTHIAZIDE/TRIM (DYAZIDE) [Concomitant]
  12. ASTEPRO (AZELASTINE) (0.15 PERCENT) [Concomitant]
  13. GABAPENTIN [Concomitant]

REACTIONS (16)
  - AMNESIA [None]
  - BRAIN OEDEMA [None]
  - CARDIAC PROCEDURE COMPLICATION [None]
  - CONFUSIONAL STATE [None]
  - HEREDITARY ANGIOEDEMA [None]
  - INTERNATIONAL NORMALISED RATIO ABNORMAL [None]
  - LETHARGY [None]
  - LOSS OF CONSCIOUSNESS [None]
  - MOBILITY DECREASED [None]
  - POST PROCEDURAL HAEMATOMA [None]
  - PULMONARY EMBOLISM [None]
  - SPEECH DISORDER [None]
  - SWELLING [None]
  - URINARY TRACT INFECTION [None]
  - VENTRICULAR TACHYCARDIA [None]
  - VOMITING [None]
